FAERS Safety Report 12317145 (Version 1)
Quarter: 2016Q2

REPORT INFORMATION
  Report Type: Spontaneous
  Country: SE (occurrence: SE)
  Receive Date: 20160429
  Receipt Date: 20160429
  Transmission Date: 20160815
  Serious: Yes (Other)
  Sender: FDA-Public Use
  Company Number: SE-ACCORD-039976

PATIENT
  Age: 51 Year
  Sex: Male

DRUGS (3)
  1. PROPAVAN SANOFI AB [Concomitant]
     Dosage: PROPAVAN 25 MG TABLET
  2. OXASCAND [Concomitant]
     Active Substance: OXAZEPAM
     Dosage: OXASCAND 10 MG TABLET
  3. ESCITALOPRAM ACCORD [Suspect]
     Active Substance: ESCITALOPRAM OXALATE
     Indication: DEPRESSION
     Route: 048
     Dates: start: 20160309, end: 20160405

REACTIONS (2)
  - Product substitution issue [Unknown]
  - Depressive symptom [Unknown]

NARRATIVE: CASE EVENT DATE: 20160309
